FAERS Safety Report 10430117 (Version 1)
Quarter: 2014Q3

REPORT INFORMATION
  Report Type: Spontaneous
  Country: US (occurrence: None)
  Receive Date: 20140902
  Receipt Date: 20140902
  Transmission Date: 20150326
  Serious: No
  Sender: FDA-Public Use
  Company Number: None

PATIENT
  Age: 65 Year
  Sex: Male
  Weight: 78.9 kg

DRUGS (1)
  1. SUCCINYLCHOLINE [Suspect]
     Active Substance: SUCCINYLCHOLINE
     Dates: start: 20140418, end: 20140428

REACTIONS (4)
  - Muscular weakness [None]
  - Paralysis [None]
  - Myalgia [None]
  - Drug effect prolonged [None]

NARRATIVE: CASE EVENT DATE: 20140418
